FAERS Safety Report 12985829 (Version 1)
Quarter: 2016Q4

REPORT INFORMATION
  Report Type: Spontaneous
  Country: DE (occurrence: DE)
  Receive Date: 20161130
  Receipt Date: 20161130
  Transmission Date: 20170207
  Serious: Yes (Other)
  Sender: FDA-Public Use
  Company Number: DE-009507513-1611DEU008284

PATIENT
  Age: 63 Year
  Sex: Female

DRUGS (3)
  1. PEGINTRON [Suspect]
     Active Substance: PEGINTERFERON ALFA-2B
     Indication: ESSENTIAL THROMBOCYTHAEMIA
     Dosage: 50 MICROGRAM, UNK
     Dates: start: 2016
  2. PREDNISOLONE. [Concomitant]
     Active Substance: PREDNISOLONE
     Indication: ULCER
     Dosage: 10-20 MG
  3. ASPIRIN. [Concomitant]
     Active Substance: ASPIRIN
     Indication: ULCER

REACTIONS (3)
  - Pulmonary embolism [Unknown]
  - Intentional product misuse [Unknown]
  - Off label use [Unknown]

NARRATIVE: CASE EVENT DATE: 2016
